FAERS Safety Report 9403174 (Version 1)
Quarter: 2013Q3

REPORT INFORMATION
  Report Type: Spontaneous
  Country: SE (occurrence: SE)
  Receive Date: 20130716
  Receipt Date: 20130716
  Transmission Date: 20140515
  Serious: Yes (Death, Other)
  Sender: FDA-Public Use
  Company Number: SE-BRISTOL-MYERS SQUIBB COMPANY-19075589

PATIENT
  Age: 46 Year
  Sex: Female

DRUGS (15)
  1. VEPESID [Suspect]
     Dates: start: 20130315, end: 20130316
  2. PERFALGAN [Concomitant]
     Dosage: 1DF:10MG/ML
  3. NEXIUM [Concomitant]
     Dosage: POWDER FOR SOLUTION FOR INJECTION/INFUSION
  4. MATRIFEN [Concomitant]
     Dosage: 1DF:TRANSDERMAL PATCH 25 MIKROGRAM/TIMME
  5. FLUCONAZOLE [Concomitant]
  6. OLANZAPINE [Concomitant]
     Dosage: ORODISPERSIBLE TABLET
  7. ZOFRAN [Concomitant]
     Dosage: TABS
     Route: 048
  8. MICROLAX [Concomitant]
     Route: 054
  9. BETAPRED [Concomitant]
     Dosage: 1DF: SOLUTION FOR INJECTION 4 MG/ML
  10. TEMESTA [Concomitant]
  11. FURIX [Concomitant]
     Dosage: 1DF: SOLUTION FOR INJECTION 10 MG/ML
  12. ANDAPSIN [Concomitant]
     Dosage: 1DF: 1 G/5 ML
     Route: 048
  13. INNOHEP [Concomitant]
     Dosage: 1DF: SOLUTION FOR INJECTION, PRE-FILLED SYRINGE 3500 ANTI-XA IE
  14. MIDAZOLAM [Concomitant]
     Dosage: 1DF:SOLUTION FOR INJECTION 5 MG/ML
  15. CILAXORAL [Concomitant]
     Dosage: 1DF: SOLUTION 7.5 MG/ML
     Route: 048

REACTIONS (2)
  - Death [Fatal]
  - Circulatory collapse [Unknown]
